APPROVED DRUG PRODUCT: ARSENIC TRIOXIDE
Active Ingredient: ARSENIC TRIOXIDE
Strength: 2MG/ML
Dosage Form/Route: INJECTABLE;INJECTION
Application: A215359 | Product #001 | TE Code: AP
Applicant: SANDOZ INC
Approved: Dec 2, 2021 | RLD: No | RS: No | Type: RX